FAERS Safety Report 16474372 (Version 1)
Quarter: 2019Q3

REPORT INFORMATION
  Report Type: Spontaneous
  Country: US (occurrence: US)
  Receive Date: 20190624
  Receipt Date: 20190624
  Transmission Date: 20191004
  Serious: Yes (Hospitalization)
  Sender: FDA-Public Use
  Company Number: None

PATIENT
  Age: 61 Year
  Sex: Female

DRUGS (3)
  1. NIFEDIPINE 60 MG ER [Concomitant]
     Dates: start: 20190415, end: 20190624
  2. REPATHA [Suspect]
     Active Substance: EVOLOCUMAB
     Indication: PRODUCT USED FOR UNKNOWN INDICATION
     Dosage: ?          OTHER FREQUENCY:EVERY 15 DAYS;?
     Route: 058
  3. AZELASTINE DROP 0.05% [Concomitant]
     Dates: start: 20190607, end: 20190624

REACTIONS (2)
  - Abdominal pain [None]
  - Headache [None]

NARRATIVE: CASE EVENT DATE: 20190621
